FAERS Safety Report 11891717 (Version 2)
Quarter: 2016Q1

REPORT INFORMATION
  Report Type: Report from Study
  Country: AT (occurrence: AT)
  Receive Date: 20160106
  Receipt Date: 20160112
  Transmission Date: 20160526
  Serious: Yes (Hospitalization)
  Sender: FDA-Public Use
  Company Number: PHHO2015AT021577

PATIENT
  Age: 63 Year
  Sex: Female
  Weight: 76.4 kg

DRUGS (2)
  1. AIN457 [Suspect]
     Active Substance: SECUKINUMAB
     Indication: PSORIATIC ARTHROPATHY
     Dosage: 300 MG WITH LOADING
     Route: 058
     Dates: start: 20151022
  2. CO-MEPRIL [Concomitant]
     Indication: HYPERTENSION
     Dosage: 1X1
     Route: 065
     Dates: start: 2011

REACTIONS (1)
  - Transient ischaemic attack [Recovered/Resolved]

NARRATIVE: CASE EVENT DATE: 20151221
